FAERS Safety Report 20885282 (Version 2)
Quarter: 2022Q2

REPORT INFORMATION
  Report Type: Report from Study
  Country: US (occurrence: US)
  Receive Date: 20220527
  Receipt Date: 20220616
  Transmission Date: 20220721
  Serious: Yes (Hospitalization, Other)
  Sender: FDA-Public Use
  Company Number: US-TAKEDA-2022TUS023956

PATIENT
  Age: 57 Year
  Sex: Male

DRUGS (8)
  1. TEDUGLUTIDE [Suspect]
     Active Substance: TEDUGLUTIDE
     Indication: Short-bowel syndrome
     Dosage: 4.75 MILLIGRAM, QD
     Route: 058
     Dates: start: 20220318
  2. TEDUGLUTIDE [Suspect]
     Active Substance: TEDUGLUTIDE
     Indication: Short-bowel syndrome
     Dosage: 4.75 MILLIGRAM, QD
     Route: 058
     Dates: start: 20220318
  3. TEDUGLUTIDE [Suspect]
     Active Substance: TEDUGLUTIDE
     Indication: Short-bowel syndrome
     Dosage: 4.75 MILLIGRAM, QD
     Route: 058
     Dates: start: 20220318
  4. TEDUGLUTIDE [Suspect]
     Active Substance: TEDUGLUTIDE
     Indication: Short-bowel syndrome
     Dosage: 4.75 MILLIGRAM, QD
     Route: 058
     Dates: start: 20220318
  5. TEDUGLUTIDE [Suspect]
     Active Substance: TEDUGLUTIDE
     Dosage: 4.75 MILLIGRAM, QD
     Route: 058
     Dates: start: 202203
  6. TEDUGLUTIDE [Suspect]
     Active Substance: TEDUGLUTIDE
     Dosage: 4.75 MILLIGRAM, QD
     Route: 058
     Dates: start: 202203
  7. TEDUGLUTIDE [Suspect]
     Active Substance: TEDUGLUTIDE
     Dosage: 4.75 MILLIGRAM, QD
     Route: 058
     Dates: start: 202203
  8. TEDUGLUTIDE [Suspect]
     Active Substance: TEDUGLUTIDE
     Dosage: 4.75 MILLIGRAM, QD
     Route: 058
     Dates: start: 202203

REACTIONS (7)
  - Hospitalisation [Unknown]
  - Intestinal obstruction [Unknown]
  - Visual impairment [Unknown]
  - Gastrointestinal pain [Unknown]
  - Pain [Unknown]
  - Nausea [Unknown]
  - Abdominal distension [Recovering/Resolving]

NARRATIVE: CASE EVENT DATE: 20220301
